FAERS Safety Report 19743487 (Version 1)
Quarter: 2021Q3

REPORT INFORMATION
  Report Type: Spontaneous
  Country: US (occurrence: US)
  Receive Date: 20210825
  Receipt Date: 20210825
  Transmission Date: 20211014
  Serious: Yes (Other)
  Sender: FDA-Public Use
  Company Number: US-AMGEN-USASP2021127856

PATIENT
  Age: 74 Year
  Sex: Female

DRUGS (4)
  1. MAGNESIUM [Concomitant]
     Active Substance: MAGNESIUM
     Dosage: 250 UNK, QD
  2. PROLIA [Suspect]
     Active Substance: DENOSUMAB
     Indication: OSTEOPOROSIS POSTMENOPAUSAL
     Dosage: UNK, Q6MO
     Route: 065
  3. VITAMIN D [COLECALCIFEROL] [Concomitant]
     Active Substance: CHOLECALCIFEROL
     Dosage: 8000 UNK, QD
  4. CALCIUM [Concomitant]
     Active Substance: CALCIUM
     Dosage: 1200 UNK, QD

REACTIONS (16)
  - Femur fracture [Not Recovered/Not Resolved]
  - Poor peripheral circulation [Unknown]
  - Stress [Unknown]
  - Impaired healing [Unknown]
  - Bladder dysfunction [Unknown]
  - Carpal tunnel syndrome [Unknown]
  - Vomiting [Unknown]
  - Weight decreased [Unknown]
  - Hypertension [Unknown]
  - Lipids abnormal [Not Recovered/Not Resolved]
  - Infection [Unknown]
  - Neuropathy peripheral [Unknown]
  - Cellulitis [Recovered/Resolved]
  - Mobility decreased [Unknown]
  - Cognitive disorder [Unknown]
  - Fall [Unknown]

NARRATIVE: CASE EVENT DATE: 201903
